FAERS Safety Report 8680155 (Version 2)
Quarter: 2013Q1

REPORT INFORMATION
  Report Type: Spontaneous
  Country: US (occurrence: None)
  Receive Date: 20120706
  Receipt Date: 20130219
  Transmission Date: 20140127
  Serious: Yes (Hospitalization, Other)
  Sender: FDA-Public Use
  Company Number: DSU-2012-05231

PATIENT
  Age: 64 Year
  Sex: Female

DRUGS (4)
  1. OLMESARTAN MEDOXOMIL [Suspect]
     Dosage: PER ORAL
     Route: 048
     Dates: end: 201108
  2. PRED- FORTE (PREDNISOLONE ACETATE) [Concomitant]
  3. ATROPINE DROPS (ATROPINE) [Concomitant]
  4. WARFARIN  (WARFARIN) [Concomitant]

REACTIONS (3)
  - MALABSORPTION [None]
  - DIARRHOEA [None]
  - WEIGHT DECREASED [None]
